FAERS Safety Report 6465021-6 (Version None)
Quarter: 2009Q4

REPORT INFORMATION
  Report Type: 
  Country: None (occurrence: None)
  Receive Date: 20091123
  Receipt Date: 20091116
  Transmission Date: 20100525
  Serious: Yes (Life-Threatening)
  Sender: FDA-Public Use
  Company Number: 2009-04805

PATIENT
  Age: 48 Year
  Sex: Female

DRUGS (2)
  1. VELCADE [Suspect]
     Indication: DRUG USE FOR UNKNOWN INDICATION
     Dates: start: 20041005, end: 20080301
  2. DOXORUBICIN HCL [Suspect]
     Indication: DRUG USE FOR UNKNOWN INDICATION
     Dates: start: 20071005

REACTIONS (8)
  - ANAEMIA [None]
  - BURNING SENSATION [None]
  - DIARRHOEA [None]
  - INFECTION [None]
  - NEUROPATHY PERIPHERAL [None]
  - NEUROTOXICITY [None]
  - PAIN IN EXTREMITY [None]
  - VOMITING [None]
